FAERS Safety Report 7296662-4 (Version None)
Quarter: 2011Q1

REPORT INFORMATION
  Report Type: 
  Country: None (occurrence: None)
  Receive Date: 20110216
  Receipt Date: 20110214
  Transmission Date: 20110831
  Serious: Yes (Hospitalization, Other)
  Sender: FDA-Public Use
  Company Number: PL-ABBOTT-10P-129-0665658-00

PATIENT

DRUGS (3)
  1. METYPRED [Concomitant]
     Indication: RHEUMATOID ARTHRITIS
     Dosage: 12 MG DAILY
     Route: 048
     Dates: start: 20020101
  2. HUMIRA [Suspect]
     Indication: RHEUMATOID ARTHRITIS
     Route: 058
     Dates: start: 20041214, end: 20091228
  3. NOLPAZA [Concomitant]
     Indication: PRODUCT USED FOR UNKNOWN INDICATION
     Dosage: 20 MG DAILY
     Route: 048
     Dates: start: 20040101

REACTIONS (10)
  - TONGUE OEDEMA [None]
  - HYPOAESTHESIA [None]
  - GINGIVAL PAIN [None]
  - ASTHENIA [None]
  - INCREASED UPPER AIRWAY SECRETION [None]
  - PRURITUS [None]
  - PRURITUS GENERALISED [None]
  - INJECTION SITE ERYTHEMA [None]
  - GINGIVAL SWELLING [None]
  - OROPHARYNGEAL PAIN [None]
